FAERS Safety Report 4267284-4 (Version None)
Quarter: 2004Q1

REPORT INFORMATION
  Report Type: 
  Country: None (occurrence: None)
  Receive Date: 20040108
  Receipt Date: 20031229
  Transmission Date: 20041129
  Serious: Yes (Hospitalization)
  Sender: FDA-Public Use
  Company Number: WAES 0312SWE00018

PATIENT
  Age: 70 Year
  Sex: Male

DRUGS (23)
  1. [THERAPY UNSPECIFIED] [Concomitant]
  2. ACETAMINOPHEN [Concomitant]
  3. FOSAMAX [Concomitant]
  4. BENSERAZIDE HYDROCHLORIDE AND LEVODOPA [Concomitant]
  5. BUDESONIDE [Concomitant]
  6. CYANOCOBALAMIN [Concomitant]
  7. ENOXAPARIN SODIUM [Concomitant]
  8. FERROUS SULFATE [Concomitant]
  9. FOLIC ACID [Concomitant]
  10. FUROSEMIDE [Concomitant]
  11. GABAPENTIN [Concomitant]
  12. INSULIN ASPART [Concomitant]
  13. INSULIN GLARGINE [Concomitant]
  14. LACTULOSE [Concomitant]
  15. LEVOFLOXACIN [Concomitant]
  16. OMEPRAZOLE MAGNESIUM [Concomitant]
  17. PANCREATIN [Concomitant]
  18. RAMIPRIL [Concomitant]
  19. VIOXX [Suspect]
     Route: 048
     Dates: start: 20031018, end: 20031026
  20. SPIRONOLACTONE [Concomitant]
  21. TERBUTALINE SULFATE [Concomitant]
  22. TRAMADOL HYDROCHLORIDE [Concomitant]
  23. WARFARIN SODIUM [Concomitant]

REACTIONS (3)
  - ABDOMINAL DISTENSION [None]
  - CARDIAC FAILURE [None]
  - WEIGHT INCREASED [None]
